FAERS Safety Report 7827228-2 (Version None)
Quarter: 2011Q4

REPORT INFORMATION
  Report Type: 
  Country: None (occurrence: None)
  Receive Date: 20111020
  Receipt Date: 20111011
  Transmission Date: 20120403
  Serious: Yes (Hospitalization)
  Sender: FDA-Public Use
  Company Number: CA-NOVOPROD-337048

PATIENT

DRUGS (16)
  1. COREG [Concomitant]
  2. WARFARIN SODIUM [Concomitant]
  3. IRON [Concomitant]
  4. FUROSEMIDE [Concomitant]
  5. AVANDIA [Concomitant]
  6. LIPITOR [Suspect]
     Indication: PRODUCT USED FOR UNKNOWN INDICATION
     Dosage: 10 MG, QD
     Route: 048
  7. REPAGLINIDE [Suspect]
     Indication: PRODUCT USED FOR UNKNOWN INDICATION
     Dosage: 2 MG, QD
     Route: 065
  8. REPAGLINIDE [Concomitant]
  9. VITAMIN E                          /00110501/ [Concomitant]
  10. SERTRALINE HYDROCHLORIDE [Concomitant]
  11. COLCHICINE [Suspect]
     Indication: PRODUCT USED FOR UNKNOWN INDICATION
     Dosage: 6.0 MG, QD
     Route: 048
  12. ALTACE [Concomitant]
  13. AMIODARONE HCL [Concomitant]
  14. ZAROXOLYN [Concomitant]
  15. COENZYME Q10 [Concomitant]
  16. MULTIVITAMIN                       /00097801/ [Concomitant]

REACTIONS (14)
  - BLOOD CREATINE PHOSPHOKINASE INCREASED [None]
  - ALANINE AMINOTRANSFERASE INCREASED [None]
  - DIARRHOEA [None]
  - ASPARTATE AMINOTRANSFERASE INCREASED [None]
  - BLOOD CREATINE PHOSPHOKINASE MB INCREASED [None]
  - BLOOD UREA INCREASED [None]
  - DYSPNOEA [None]
  - MUSCULAR WEAKNESS [None]
  - LIVER FUNCTION TEST ABNORMAL [None]
  - COUGH [None]
  - HEPATIC ENZYME INCREASED [None]
  - RED BLOOD CELL SEDIMENTATION RATE INCREASED [None]
  - BLOOD CREATINE INCREASED [None]
  - BLOOD URIC ACID INCREASED [None]
